FAERS Safety Report 5221681-9 (Version None)
Quarter: 2007Q1

REPORT INFORMATION
  Report Type: 
  Country: None (occurrence: None)
  Receive Date: 20070126
  Receipt Date: 20070126
  Transmission Date: 20070707
  Serious: Yes (Life-Threatening)
  Sender: FDA-Public Use
  Company Number: None

PATIENT
  Age: 80 Year
  Sex: Female
  Weight: 82 kg

DRUGS (9)
  1. LIDOCAINE [Suspect]
     Indication: NERVE BLOCK
     Dosage: APPROXIMATELY 300 MG    OTHER
     Route: 050
     Dates: start: 20061130, end: 20061130
  2. LEVOTHYROXINE SODIUM [Concomitant]
  3. LISINOPRIL [Concomitant]
  4. LOVASTATIN [Concomitant]
  5. METOPROLOL TARTRATE [Concomitant]
  6. MORPHINE [Concomitant]
  7. OXYCODONE AND ACETAMINOPHEN [Concomitant]
  8. INSULIN [Concomitant]
  9. DIGOXIN [Concomitant]

REACTIONS (6)
  - ANAESTHETIC COMPLICATION [None]
  - BLOOD PRESSURE DECREASED [None]
  - GRAND MAL CONVULSION [None]
  - INCORRECT ROUTE OF DRUG ADMINISTRATION [None]
  - NO THERAPEUTIC RESPONSE [None]
  - TACHYCARDIA [None]
